FAERS Safety Report 5404884-X (Version None)
Quarter: 2007Q3

REPORT INFORMATION
  Report Type: 
  Country: None (occurrence: None)
  Receive Date: 20070803
  Receipt Date: 20070727
  Transmission Date: 20080115
  Serious: Yes (Other)
  Sender: FDA-Public Use
  Company Number: PHNU2007DE02673

PATIENT
  Age: 61 Year
  Sex: Male

DRUGS (5)
  1. ZOMETA [Suspect]
     Indication: METASTASES TO BONE
     Route: 042
  2. CIBACEN [Concomitant]
     Dosage: 10 MG, QD
     Route: 065
  3. METOPROLOL SUCCINATE [Concomitant]
     Route: 065
  4. IBUHEXAL [Concomitant]
     Dosage: 400 MG, QD
     Route: 065
  5. GLIMEPIRIDE [Concomitant]
     Route: 065

REACTIONS (12)
  - ACTINOMYCOSIS [None]
  - DENTAL FISTULA [None]
  - DENTAL TREATMENT [None]
  - IMPAIRED HEALING [None]
  - INFLAMMATION [None]
  - ORAL SURGERY [None]
  - OSTEITIS [None]
  - OSTEOMYELITIS [None]
  - OSTEONECROSIS [None]
  - PURULENT DISCHARGE [None]
  - TOOTH EXTRACTION [None]
  - X-RAY DENTAL [None]
